FAERS Safety Report 16137775 (Version 3)
Quarter: 2019Q2

REPORT INFORMATION
  Report Type: Report from Study
  Country: None (occurrence: US)
  Receive Date: 20190330
  Receipt Date: 20190615
  Transmission Date: 20190711
  Serious: Yes (Other)
  Sender: FDA-Public Use
  Company Number: US-ABBVIE-19K-163-2723882-00

PATIENT
  Age: 36 Year
  Sex: Female
  Weight: 61.29 kg

DRUGS (6)
  1. HUMIRA [Suspect]
     Active Substance: ADALIMUMAB
     Indication: CROHN^S DISEASE
     Route: 058
     Dates: start: 201810, end: 2019
  2. HYDROCODONE [Concomitant]
     Active Substance: HYDROCODONE
     Indication: FIBROMYALGIA
  3. LORAZEPAM. [Concomitant]
     Active Substance: LORAZEPAM
     Indication: POST-TRAUMATIC STRESS DISORDER
  4. HUMIRA [Suspect]
     Active Substance: ADALIMUMAB
     Indication: CROHN^S DISEASE
     Route: 058
     Dates: start: 2019
  5. TRAZODONE [Concomitant]
     Active Substance: TRAZODONE HYDROCHLORIDE
     Indication: PRODUCT USED FOR UNKNOWN INDICATION
  6. TYLENOL [Concomitant]
     Active Substance: ACETAMINOPHEN
     Indication: PRODUCT USED FOR UNKNOWN INDICATION

REACTIONS (5)
  - Haematocrit decreased [Recovering/Resolving]
  - Blood iron decreased [Recovering/Resolving]
  - Blood count abnormal [Recovering/Resolving]
  - Haematocrit decreased [Recovered/Resolved]
  - Post procedural haemorrhage [Not Recovered/Not Resolved]

NARRATIVE: CASE EVENT DATE: 2019
